FAERS Safety Report 7353826-9 (Version None)
Quarter: 2011Q1

REPORT INFORMATION
  Report Type: 
  Country: None (occurrence: None)
  Receive Date: 20110315
  Receipt Date: 20110225
  Transmission Date: 20110831
  Serious: No
  Sender: FDA-Public Use
  Company Number: BR-US-EMD SERONO, INC.-7028761

PATIENT
  Sex: Male

DRUGS (3)
  1. REBIF [Suspect]
     Indication: RELAPSING-REMITTING MULTIPLE SCLEROSIS
     Dates: start: 20080821
  2. BACLOFEN [Concomitant]
  3. DIAZEPAM [Concomitant]

REACTIONS (2)
  - ASTHENIA [None]
  - WEIGHT DECREASED [None]
